FAERS Safety Report 10086547 (Version 1)
Quarter: 2014Q2

REPORT INFORMATION
  Report Type: Spontaneous
  Country: US (occurrence: US)
  Receive Date: 20140418
  Receipt Date: 20140418
  Transmission Date: 20141212
  Serious: No
  Sender: FDA-Public Use
  Company Number: US-B.I. PHARMACEUTICALS,INC./RIDGEFIELD-2014-BI-15726BP

PATIENT
  Sex: Female

DRUGS (2)
  1. MICARDIS [Suspect]
     Indication: PRODUCT USED FOR UNKNOWN INDICATION
     Route: 065
  2. OXYCODONE [Concomitant]
     Indication: PAIN
     Route: 065

REACTIONS (5)
  - Joint swelling [Unknown]
  - Dysphonia [Unknown]
  - Peripheral swelling [Unknown]
  - Pruritus [Unknown]
  - Back pain [Unknown]
